FAERS Safety Report 5553427-9 (Version None)
Quarter: 2007Q4

REPORT INFORMATION
  Report Type: 
  Country: None (occurrence: None)
  Receive Date: 20071128
  Receipt Date: 20070622
  Transmission Date: 20080405
  Serious: Yes (Other)
  Sender: FDA-Public Use
  Company Number: 2007022995

PATIENT
  Age: 62 Year
  Sex: Male
  Weight: 78.9 kg

DRUGS (2)
  1. LIPITOR [Suspect]
     Dosage: 10 MG (10 MG, 1 IN 1 D) , ORAL
     Route: 048
     Dates: start: 20061221, end: 20070101
  2. OXYCONTIN [Concomitant]

REACTIONS (4)
  - ADVERSE EVENT [None]
  - ARTHRALGIA [None]
  - INSOMNIA [None]
  - MYALGIA [None]
